FAERS Safety Report 15225715 (Version 5)
Quarter: 2019Q1

REPORT INFORMATION
  Report Type: Spontaneous
  Country: US (occurrence: US)
  Receive Date: 20180801
  Receipt Date: 20190226
  Transmission Date: 20190417
  Serious: No
  Sender: FDA-Public Use
  Company Number: US-PFIZER INC-2018305349

PATIENT
  Age: 65 Year
  Sex: Female
  Weight: 48.98 kg

DRUGS (4)
  1. PREMARIN [Suspect]
     Active Substance: ESTROGENS, CONJUGATED
     Indication: MENOPAUSE
     Dosage: 0.625 MG, UNK
     Dates: start: 201807
  2. SYNTHROID [Concomitant]
     Active Substance: LEVOTHYROXINE SODIUM
     Indication: HYPOTHYROIDISM
     Dosage: 88 UG, DAILY
     Route: 048
     Dates: start: 1980
  3. CLONAZEPAM. [Concomitant]
     Active Substance: CLONAZEPAM
     Indication: MUSCLE SPASMS
     Dosage: 0.5 MG, 1X/DAY
     Route: 048
     Dates: start: 1990
  4. PREMARIN [Suspect]
     Active Substance: ESTROGENS, CONJUGATED
     Dosage: 0.625 MG, THREE TIMES A WEEK
     Route: 067
     Dates: start: 20190206

REACTIONS (9)
  - Vaginal haemorrhage [Unknown]
  - Product dispensing error [Unknown]
  - Vulvovaginal burning sensation [Recovering/Resolving]
  - Malaise [Unknown]
  - Product use issue [Unknown]
  - Drug ineffective [Unknown]
  - Weight decreased [Unknown]
  - Pain [Unknown]
  - Insomnia [Unknown]

NARRATIVE: CASE EVENT DATE: 20180723
